FAERS Safety Report 12836265 (Version 1)
Quarter: 2016Q4

REPORT INFORMATION
  Report Type: Spontaneous
  Country: US (occurrence: US)
  Receive Date: 20161011
  Receipt Date: 20161011
  Transmission Date: 20170207
  Serious: No
  Sender: FDA-Public Use
  Company Number: US-GLAXOSMITHKLINE-US2016147692

PATIENT
  Sex: Female

DRUGS (3)
  1. ATACAND [Concomitant]
     Active Substance: CANDESARTAN CILEXETIL
  2. OMEPRAZOLE. [Concomitant]
     Active Substance: OMEPRAZOLE
  3. CARVEDILOL TABLET [Suspect]
     Active Substance: CARVEDILOL
     Indication: HYPERTENSION
     Dosage: UNK, QD
     Route: 048
     Dates: start: 2016, end: 2016

REACTIONS (3)
  - Product substitution issue [Unknown]
  - Drug ineffective [Recovered/Resolved]
  - Product formulation issue [Unknown]

NARRATIVE: CASE EVENT DATE: 2016
